FAERS Safety Report 24700562 (Version 1)
Quarter: 2024Q4

REPORT INFORMATION
  Report Type: Spontaneous
  Country: US (occurrence: US)
  Receive Date: 20241205
  Receipt Date: 20241205
  Transmission Date: 20250115
  Serious: Yes (Other)
  Sender: UCB
  Company Number: US-UCBSA-2024062491

PATIENT
  Age: 30 Year
  Sex: Female

DRUGS (3)
  1. CIMZIA [Suspect]
     Active Substance: CERTOLIZUMAB PEGOL
     Indication: Psoriasis
     Dosage: 400 MILLIGRAM, EV 2 WEEKS(QOW)
     Route: 058
     Dates: start: 202210
  2. CIMZIA [Suspect]
     Active Substance: CERTOLIZUMAB PEGOL
     Indication: Hidradenitis
  3. CIMZIA [Suspect]
     Active Substance: CERTOLIZUMAB PEGOL
     Indication: Off label use

REACTIONS (2)
  - Condition aggravated [Unknown]
  - Off label use [Unknown]

NARRATIVE: CASE EVENT DATE: 20221001
